FAERS Safety Report 8838478 (Version 1)
Quarter: 2012Q4

REPORT INFORMATION
  Report Type: 
  Country: US (occurrence: US)
  Receive Date: 20121012
  Receipt Date: 20121012
  Transmission Date: 20130627
  Serious: Yes (Hospitalization, Other)
  Sender: FDA-Public Use
  Company Number: US-ASTRAZENECA-2010SE39249

PATIENT
  Age: 61 Year
  Sex: Female

DRUGS (22)
  1. SEROQUEL [Suspect]
     Route: 048
  2. ZESTRIL [Suspect]
     Route: 048
  3. METOPROLOL TARTRATE [Suspect]
     Route: 048
  4. WELLBUTRIN [Concomitant]
     Route: 048
  5. LAMICTAL [Concomitant]
     Route: 048
  6. SIMVASTATIN [Concomitant]
     Route: 048
  7. EFIENT [Concomitant]
  8. NUVIGIL [Concomitant]
     Route: 048
  9. RANEXA [Concomitant]
  10. ALBUTEROL [Concomitant]
     Indication: WHEEZING
     Dosage: 2 puffs inhalation as needed
     Route: 055
  11. ASPIRIN [Concomitant]
     Route: 048
  12. MAG OX [Concomitant]
  13. BIOTIN [Concomitant]
     Route: 048
  14. CALCIUM CARBONATE [Concomitant]
     Route: 048
  15. VITAMIN D3 [Concomitant]
     Route: 048
  16. GLUCOSAMINE + CHONDROITIN WITH MSM [Concomitant]
     Route: 048
  17. PLAVIX [Concomitant]
     Dosage: 75mg every day before breakfast
     Route: 048
  18. FAMOTIDINE [Concomitant]
     Route: 048
  19. LORATADINE [Concomitant]
     Route: 048
  20. PSEUDOEPHEDRINE [Concomitant]
     Indication: SINUS CONGESTION
     Route: 048
  21. PRENATAL MULTIVITAMINS [Concomitant]
     Route: 048
  22. ZETIA [Concomitant]

REACTIONS (2)
  - Myocardial infarction [Unknown]
  - Chest pain [Unknown]
